FAERS Safety Report 13928951 (Version 1)
Quarter: 2017Q3

REPORT INFORMATION
  Report Type: Spontaneous
  Country: RU (occurrence: RU)
  Receive Date: 20170901
  Receipt Date: 20170901
  Transmission Date: 20171127
  Serious: Yes (Hospitalization)
  Sender: FDA-Public Use
  Company Number: RU-ASTRAZENECA-2017SE88374

PATIENT
  Age: 58 Year
  Sex: Female
  Weight: 95 kg

DRUGS (8)
  1. LOSAP [Concomitant]
  2. THROMBO ASS [Concomitant]
     Active Substance: ASPIRIN
  3. INDAPAMIDE. [Concomitant]
     Active Substance: INDAPAMIDE
  4. BISOPROLOL [Concomitant]
     Active Substance: BISOPROLOL
  5. OMEPRAZOLE. [Concomitant]
     Active Substance: OMEPRAZOLE
  6. ROSUVASTATIN. [Concomitant]
     Active Substance: ROSUVASTATIN
  7. BRILINTA [Suspect]
     Active Substance: TICAGRELOR
     Indication: MYOCARDIAL INFARCTION
     Route: 048
     Dates: start: 201703
  8. ACECARDOL [Concomitant]
     Active Substance: ASPIRIN

REACTIONS (1)
  - Chest pain [Recovering/Resolving]

NARRATIVE: CASE EVENT DATE: 201703
